FAERS Safety Report 19275952 (Version 24)
Quarter: 2024Q1

REPORT INFORMATION
  Report Type: Report from Study
  Country: AU (occurrence: AU)
  Receive Date: 20210519
  Receipt Date: 20240318
  Transmission Date: 20240409
  Serious: Yes (Hospitalization, Other)
  Sender: FDA-Public Use
  Company Number: AU-IPSEN GROUP, RESEARCH AND DEVELOPMENT-2020-16574

PATIENT
  Age: 79 Year
  Sex: Male
  Weight: 83 kg

DRUGS (8)
  1. LANREOTIDE ACETATE [Suspect]
     Active Substance: LANREOTIDE ACETATE
     Indication: Gastroenteropancreatic neuroendocrine tumour disease
     Dosage: 120 MG
     Route: 058
     Dates: start: 201707
  2. LANREOTIDE ACETATE [Suspect]
     Active Substance: LANREOTIDE ACETATE
     Indication: Carcinoid syndrome
     Dosage: 120 MG EVERY 28 DAYS
     Route: 058
     Dates: end: 202112
  3. LANREOTIDE ACETATE [Suspect]
     Active Substance: LANREOTIDE ACETATE
     Dosage: 120 MG EVERY 3 WEEKS (21 DAYS)
     Route: 058
     Dates: start: 20210112
  4. LANREOTIDE ACETATE [Suspect]
     Active Substance: LANREOTIDE ACETATE
     Route: 058
  5. PREDNISOLONE [Suspect]
     Active Substance: PREDNISOLONE
     Indication: Product used for unknown indication
     Dosage: NOT REPORTED
     Route: 065
     Dates: start: 2020, end: 202011
  6. MOVICOL [Suspect]
     Active Substance: POLYETHYLENE GLYCOL 3350\POTASSIUM CHLORIDE\SODIUM BICARBONATE\SODIUM CHLORIDE
     Indication: Product used for unknown indication
     Dosage: DOSE AND FREQUENCY NOT REPORTED
     Route: 065
  7. CORTISONE [Suspect]
     Active Substance: CORTISONE
     Indication: Product used for unknown indication
     Route: 065
  8. METAMUCIL [Concomitant]
     Active Substance: PLANTAGO SEED
     Dates: end: 202112

REACTIONS (31)
  - Non-Hodgkin^s lymphoma [Not Recovered/Not Resolved]
  - Jaundice [Recovering/Resolving]
  - Malignant neoplasm progression [Not Recovered/Not Resolved]
  - Neoplasm progression [Not Recovered/Not Resolved]
  - Biliary obstruction [Recovering/Resolving]
  - Fall [Recovering/Resolving]
  - Contusion [Recovering/Resolving]
  - Stent placement [Recovering/Resolving]
  - Basal cell carcinoma [Not Recovered/Not Resolved]
  - Nocturia [Unknown]
  - Skin cancer [Unknown]
  - Cataract [Recovering/Resolving]
  - Diarrhoea [Recovered/Resolved]
  - Malaise [Not Recovered/Not Resolved]
  - Constipation [Recovered/Resolved]
  - Palpitations [Recovered/Resolved]
  - Blood chromogranin A increased [Unknown]
  - Post procedural diarrhoea [Recovering/Resolving]
  - Off label use [Unknown]
  - Wound haemorrhage [Recovered/Resolved with Sequelae]
  - Hepatic enzyme increased [Not Recovered/Not Resolved]
  - Body temperature increased [Not Recovered/Not Resolved]
  - Chills [Recovered/Resolved]
  - Off label use [Unknown]
  - Inappropriate schedule of product administration [Unknown]
  - Diarrhoea [Not Recovered/Not Resolved]
  - Nausea [Not Recovered/Not Resolved]
  - Dyspnoea [Recovered/Resolved]
  - COVID-19 [Recovered/Resolved]
  - Off label use [Unknown]
  - Product dose omission issue [Unknown]

NARRATIVE: CASE EVENT DATE: 20200923
